FAERS Safety Report 7166891-9 (Version None)
Quarter: 2010Q4

REPORT INFORMATION
  Report Type: 
  Country: None (occurrence: None)
  Receive Date: 20101213
  Receipt Date: 20101213
  Transmission Date: 20110411
  Serious: Yes (Hospitalization)
  Sender: FDA-Public Use
  Company Number: None

PATIENT
  Age: 48 Year
  Sex: Male
  Weight: 97.5234 kg

DRUGS (4)
  1. LITHIUM CITRATE [Suspect]
     Indication: INTERMITTENT EXPLOSIVE DISORDER
     Dosage: 300 MG/ 5 ML Q AM ORAL
     Route: 048
     Dates: start: 20100601
  2. LITHIUM CITRATE [Suspect]
     Dosage: 900 MG/15 ML QHS ORAL
     Route: 048
  3. ZOLOFT [Suspect]
  4. CLOZARIL [Suspect]

REACTIONS (1)
  - MYOCLONIC EPILEPSY [None]
